FAERS Safety Report 10206525 (Version 2)
Quarter: 2015Q2

REPORT INFORMATION
  Report Type: Spontaneous
  Country: US (occurrence: US)
  Receive Date: 20140530
  Receipt Date: 20150520
  Transmission Date: 20150821
  Serious: Yes (Death, Other)
  Sender: FDA-Public Use
  Company Number: US-GLAXOSMITHKLINE-A1023866A

PATIENT
  Age: 49 Year
  Sex: Female

DRUGS (2)
  1. FLOLAN [Suspect]
     Active Substance: EPOPROSTENOL SODIUM
     Indication: PULMONARY ARTERIAL HYPERTENSION
     Dosage: 67 NG/KG/MIN (CONCENTRATION: 90,000 NG/MLVIAL STRENGHT: 1.5 MG, CO
     Route: 042
     Dates: start: 19970919
  2. FLOLAN [Suspect]
     Active Substance: EPOPROSTENOL SODIUM
     Dosage: 67 NG/KG/MIN (CONCENTRATION: 90,000 NG/MLVIAL STRENGHT: 1.5 MG, CO

REACTIONS (2)
  - Catheter site pain [Unknown]
  - Death [Fatal]

NARRATIVE: CASE EVENT DATE: 20150502
